FAERS Safety Report 18685943 (Version 2)
Quarter: 2021Q1

REPORT INFORMATION
  Report Type: Spontaneous
  Country: US (occurrence: US)
  Receive Date: 20201230
  Receipt Date: 20210104
  Transmission Date: 20210419
  Serious: No
  Sender: FDA-Public Use
  Company Number: US-NEXGEN PHARMA, INC.-2103663

PATIENT
  Sex: Female

DRUGS (2)
  1. DICLOFENAC (VARIETY UNSPECIFIED) [Concomitant]
     Route: 065
     Dates: start: 20201208
  2. BAC 325 7320 (BUTALBITAL 50MG, ACETAMINOPHEN 325MG AND CAFFEINE 40MG) [Suspect]
     Active Substance: ACETAMINOPHEN\BUTALBITAL\CAFFEINE
     Indication: HEADACHE
     Route: 048
     Dates: start: 2018

REACTIONS (2)
  - Dysgeusia [Unknown]
  - Nausea [None]
